FAERS Safety Report 12271108 (Version 8)
Quarter: 2019Q2

REPORT INFORMATION
  Report Type: Spontaneous
  Country: US (occurrence: US)
  Receive Date: 20160415
  Receipt Date: 20190626
  Transmission Date: 20190711
  Serious: Yes (Hospitalization, Other)
  Sender: FDA-Public Use
  Company Number: US-PFIZER INC-2016213100

PATIENT
  Age: 64 Year
  Sex: Female
  Weight: 58 kg

DRUGS (52)
  1. LORATADINE. [Concomitant]
     Active Substance: LORATADINE
     Indication: DYSPNOEA
     Dosage: 10 MG, 1X/DAY
  2. LIDODERM [Concomitant]
     Active Substance: LIDOCAINE
     Dosage: 5 %, DAILY (PLACE 1 PATCH ONTO THE SKIN EVERY 24 HOURS)
     Route: 062
  3. ALBUTEROL. [Concomitant]
     Active Substance: ALBUTEROL
     Indication: WHEEZING
  4. TYLENOL [Concomitant]
     Active Substance: ACETAMINOPHEN
     Indication: PYREXIA
     Dosage: 1-2 TABLETS (500 - 1000 MG) EVERY 4 HOURS, AS NEEDED
     Route: 048
  5. PERI-COLACE [Concomitant]
     Active Substance: CASANTHRANOL\DOCUSATE SODIUM
     Indication: CONSTIPATION
     Dosage: 100 MG, AS NEEDED (2 TABLETS 2 TIMES DAILY)
     Route: 048
  6. VENTOLIN HFA [Concomitant]
     Active Substance: ALBUTEROL SULFATE
     Indication: WHEEZING
  7. REVATIO [Suspect]
     Active Substance: SILDENAFIL CITRATE
     Indication: PULMONARY ARTERIAL HYPERTENSION
     Dosage: 20 MG, 3X/DAY (1 TAB)
     Route: 048
     Dates: start: 2000
  8. WARFARIN [Concomitant]
     Active Substance: WARFARIN
     Indication: THROMBOSIS
     Dosage: 5 MG, 1X/DAY
  9. FOLIC ACID. [Concomitant]
     Active Substance: FOLIC ACID
     Dosage: 800 UG, 2X/DAY
     Route: 048
  10. SENNA [Concomitant]
     Active Substance: SENNA LEAF\SENNOSIDES\SENNOSIDES A AND B
     Dosage: 1 DF, 1X/DAY
  11. FLONASE [Concomitant]
     Active Substance: FLUTICASONE PROPIONATE
     Indication: RHINITIS ALLERGIC
     Dosage: 1-2 SPRAYS INTO BOTH NOSTRILS DAILY, AS NEEDED
     Route: 045
  12. TYLENOL [Concomitant]
     Active Substance: ACETAMINOPHEN
     Indication: PAIN
     Dosage: 650 MG, AS NEEDED EVERY 4 HOURS
     Route: 048
  13. DELTASONE [Concomitant]
     Active Substance: PREDNISONE
     Dosage: 10 MG, DAILY (TAKE 1 TABLET)
     Route: 048
  14. PROAIR HFA [Concomitant]
     Active Substance: ALBUTEROL SULFATE
     Indication: DYSPNOEA
     Dosage: 2 DF, AS NEEDED (INHALE 2 PUFFS INTO THE LUNGS EVERY 4 HOURS)
     Route: 055
  15. CITRACAL [Concomitant]
     Active Substance: CALCIUM CITRATE
     Dosage: 1 DF, DAILY
     Route: 048
  16. REVATIO [Suspect]
     Active Substance: SILDENAFIL CITRATE
     Indication: BLOOD DISORDER
     Dosage: 20 MG, 3X/DAY
     Route: 048
  17. PREDNISONE. [Concomitant]
     Active Substance: PREDNISONE
     Indication: LUNG INFECTION
     Dosage: 20 MG, DAILY (5MG TAB, 4 TAB DAILY FOR 3 WEEKS)
  18. ROXICODONE [Concomitant]
     Active Substance: OXYCODONE HYDROCHLORIDE
     Dosage: 10 MG, AS NEEDED (1 TABLET 3 TIMES)
     Route: 048
  19. ATIVAN [Concomitant]
     Active Substance: LORAZEPAM
     Dosage: 1 MG, DAILY
     Route: 048
  20. VENTOLIN HFA [Concomitant]
     Active Substance: ALBUTEROL SULFATE
     Indication: DYSPNOEA
     Dosage: 2 DF, AS NEEDED (INHALE 2 PUFFS INTO THE LUNGS EVERY 4 HOURS)
     Route: 055
  21. ADVAIR HFA [Concomitant]
     Active Substance: FLUTICASONE PROPIONATE\SALMETEROL XINAFOATE
     Dosage: 1 DF, 2X/DAY
     Route: 055
  22. FLONASE [Concomitant]
     Active Substance: FLUTICASONE PROPIONATE
     Indication: HYPERSENSITIVITY
     Dosage: 2 DF, DAILY (1 SPRAY IN EACH NOSTIL)
     Route: 045
  23. VENTOLIN [Concomitant]
     Active Substance: ALBUTEROL SULFATE
     Indication: DYSPNOEA
     Dosage: UNK, 2X/DAY (VIA NEBULIZER)
     Route: 055
  24. PROVENTIL HFA [Concomitant]
     Active Substance: ALBUTEROL SULFATE
     Indication: DYSPNOEA
     Dosage: 2 DF, AS NEEDED (INHALE 2 PUFFS INTO THE LUNGS EVERY 4 HOURS)
     Route: 055
  25. CITRACAL [Concomitant]
     Active Substance: CALCIUM CITRATE
     Dosage: 1000 MG, 1X/DAY
  26. PREDNISONE. [Concomitant]
     Active Substance: PREDNISONE
     Dosage: 12.5 MG, DAILY (2 1/2 TAB DAILY)
  27. AMBIEN [Concomitant]
     Active Substance: ZOLPIDEM TARTRATE
     Indication: SLEEP DISORDER
     Dosage: 5 MG, AS NEEDED (TAKE 1 TABLET (5 MG) NIGHTLY AS NEEDED)
     Route: 048
  28. SYMBICORT [Concomitant]
     Active Substance: BUDESONIDE\FORMOTEROL FUMARATE DIHYDRATE
     Dosage: 2 DF, 2X/DAY (INHALE 2 PUFFS INTO THE LUNGS 2 TIMES DAILY)
     Route: 055
  29. ROXICODONE [Concomitant]
     Active Substance: OXYCODONE HYDROCHLORIDE
     Indication: PAIN
     Dosage: 5 MG, AS NEEDED (1 TABLET FOR EVERY 6 HOURS)
     Route: 048
  30. ATROVENT [Concomitant]
     Active Substance: IPRATROPIUM BROMIDE
     Indication: RHINITIS
     Dosage: 4 DF, AS NEEDED (2 SPRAYS INTO BOTH NOSTRILS 4 TIMES DAILY AS NEEDED)
     Route: 045
  31. PROAIR HFA [Concomitant]
     Active Substance: ALBUTEROL SULFATE
     Indication: WHEEZING
  32. FOLIC ACID. [Concomitant]
     Active Substance: FOLIC ACID
     Dosage: 1000 MG, 1X/DAY
  33. LORAZEPAM. [Concomitant]
     Active Substance: LORAZEPAM
     Dosage: UNK
  34. MULTIVITAMIN AND MINERAL [Concomitant]
     Dosage: 1 DF, DAILY
     Route: 048
  35. CLARITIN [Concomitant]
     Active Substance: LORATADINE
     Dosage: 10 MG, DAILY
     Route: 048
  36. ZESTRIL [Concomitant]
     Active Substance: LISINOPRIL
     Indication: HYPERTENSION
     Dosage: 2.5 MG, AS NEEDED
  37. ALBUTEROL. [Concomitant]
     Active Substance: ALBUTEROL
     Indication: DYSPNOEA
     Dosage: 2.5 MG, AS NEEDED(2.5MG/3ML)0.083%NEBULIZERSOLUTION) TAKE1VIAL (2.5MG) BY NEBULIZATION EVERY 6 HRS
     Route: 045
  38. PROCRIT [Concomitant]
     Active Substance: ERYTHROPOIETIN
     Indication: HAEMATOCRIT ABNORMAL
     Dosage: UNK, WEEKLY (40000 - 60000 UNITS ONCE WEEKLY DEPENDING ON HAEMATOCRIT)
     Route: 058
  39. PROVENTIL HFA [Concomitant]
     Active Substance: ALBUTEROL SULFATE
     Indication: WHEEZING
  40. VITAMIN C [Concomitant]
     Active Substance: ASCORBIC ACID
     Dosage: 1000 MG, 1X/DAY
     Route: 048
  41. ADVAIR HFA [Concomitant]
     Active Substance: FLUTICASONE PROPIONATE\SALMETEROL XINAFOATE
     Indication: DYSPNOEA
     Dosage: 1 DF (1 PUFF), UNK
  42. OXYCODONE [Concomitant]
     Active Substance: OXYCODONE
     Indication: BACK PAIN
     Dosage: 10 MG, 1X/DAY
  43. COUMADIN [Concomitant]
     Active Substance: WARFARIN SODIUM
     Dosage: UNK
  44. ZOLOFT [Concomitant]
     Active Substance: SERTRALINE HYDROCHLORIDE
     Dosage: 12.5 MG, DAILY (TAKE 0.5 MG TABLETS (12.5 MG)
     Route: 048
  45. BREO ELLIPTA [Concomitant]
     Active Substance: FLUTICASONE FUROATE\VILANTEROL TRIFENATATE
     Dosage: 1 DF, DAILY (1 PUFF INTO THE LUNGS)
     Route: 055
  46. DURAGESIC [Concomitant]
     Active Substance: FENTANYL
     Dosage: 75 UG, CYCLIC (PLACE 1 PATCH EVERY 72 HOURS)
     Route: 062
  47. NEURONTIN [Concomitant]
     Active Substance: GABAPENTIN
     Dosage: 300 MG, 2X/DAY
     Route: 048
  48. ZOFRAN ODT [Concomitant]
     Active Substance: ONDANSETRON HYDROCHLORIDE
     Dosage: 1-2 TABLETS (4-8 MG), 3X/DAY
     Route: 048
  49. PRINIVIL [Concomitant]
     Active Substance: LISINOPRIL
     Indication: HYPERTENSION
     Dosage: 2.5 MG, AS NEEDED
  50. WARFARIN SODIUM. [Concomitant]
     Active Substance: WARFARIN SODIUM
     Dosage: UNK UNK, 1X/DAY (EVERY EVENING)
     Route: 048
  51. SENOKOT-S [Concomitant]
     Active Substance: DOCUSATE SODIUM\SENNOSIDES
     Indication: CONSTIPATION
     Dosage: 17.2 MG, AS NEEDED (2 TABLETS 2 TIMES DAILY)
     Route: 048
  52. LASIX [Concomitant]
     Active Substance: FUROSEMIDE
     Dosage: 20 MG, DAILY (1 TABLET)
     Route: 048

REACTIONS (5)
  - Malaise [Recovered/Resolved]
  - Sinus disorder [Unknown]
  - Nasopharyngitis [Unknown]
  - Pneumonia [Recovering/Resolving]
  - Liver disorder [Recovering/Resolving]

NARRATIVE: CASE EVENT DATE: 20160408
